FAERS Safety Report 10653950 (Version 1)
Quarter: 2014Q4

REPORT INFORMATION
  Report Type: Spontaneous
  Country: SE (occurrence: SE)
  Receive Date: 20141216
  Receipt Date: 20141216
  Transmission Date: 20150529
  Serious: Yes (Disabling)
  Sender: FDA-Public Use
  Company Number: SE-JNJFOC-20141207187

PATIENT
  Sex: Male

DRUGS (11)
  1. CELEBRA [Concomitant]
     Active Substance: CELECOXIB
     Route: 065
  2. FOLACIN [Concomitant]
     Active Substance: FOLIC ACID
     Route: 065
  3. ROGAINE FORTE [Suspect]
     Active Substance: MINOXIDIL
     Route: 065
  4. SIMPONI [Concomitant]
     Active Substance: GOLIMUMAB
     Route: 065
  5. FRAGMIN [Concomitant]
     Active Substance: DALTEPARIN SODIUM
     Route: 065
  6. AMLODIPINE [Concomitant]
     Active Substance: AMLODIPINE BESYLATE
     Route: 065
  7. ROGAINE FORTE [Suspect]
     Active Substance: MINOXIDIL
     Indication: ANDROGENETIC ALOPECIA
     Route: 065
     Dates: start: 2013
  8. PROPAVAN [Concomitant]
     Active Substance: PROPIOMAZINE
     Route: 065
  9. WARAN [Concomitant]
     Active Substance: WARFARIN SODIUM
     Route: 065
  10. PREDNISOLONE. [Concomitant]
     Active Substance: PREDNISOLONE
     Route: 065
  11. METHOTREXATE [Concomitant]
     Active Substance: METHOTREXATE
     Route: 065

REACTIONS (1)
  - Dermatitis contact [Not Recovered/Not Resolved]
